FAERS Safety Report 18629021 (Version 1)
Quarter: 2020Q4

REPORT INFORMATION
  Report Type: Spontaneous
  Country: US (occurrence: US)
  Receive Date: 20201217
  Receipt Date: 20201217
  Transmission Date: 20210114
  Serious: No
  Sender: FDA-Public Use
  Company Number: US-ESPERIONTHERAPEUTICS-2020USA00053

PATIENT
  Age: 80 Year
  Sex: Female

DRUGS (4)
  1. NEXLETOL [Suspect]
     Active Substance: BEMPEDOIC ACID
     Indication: HYPERLIPIDAEMIA
     Dosage: 180 MILLIGRAM, QD
     Route: 048
     Dates: start: 20200713, end: 20200812
  2. NEXLETOL [Suspect]
     Active Substance: BEMPEDOIC ACID
     Indication: ARTERIOSCLEROSIS
     Dosage: 180 MILLIGRAM, QD
     Route: 048
     Dates: start: 20200824, end: 20200827
  3. PROTONIX [Concomitant]
     Active Substance: PANTOPRAZOLE SODIUM
     Indication: GASTROOESOPHAGEAL REFLUX DISEASE
     Dosage: 40 MILLIGRAM, BID
  4. TOPROL XL [Concomitant]
     Active Substance: METOPROLOL SUCCINATE
     Dosage: LOWEST DOSE

REACTIONS (5)
  - Oesophageal irritation [Unknown]
  - Blood pressure fluctuation [Unknown]
  - Burning sensation [Recovering/Resolving]
  - Dizziness [Unknown]
  - Chest pain [Recovering/Resolving]

NARRATIVE: CASE EVENT DATE: 202008
